FAERS Safety Report 22528443 (Version 2)
Quarter: 2023Q2

REPORT INFORMATION
  Report Type: Spontaneous
  Country: IT (occurrence: IT)
  Receive Date: 20230607
  Receipt Date: 20230609
  Transmission Date: 20230721
  Serious: Yes (Death)
  Sender: FDA-Public Use
  Company Number: IT-EXELIXIS-CABO-23064493

PATIENT
  Age: 57 Year
  Sex: Male

DRUGS (1)
  1. COMETRIQ [Suspect]
     Active Substance: CABOZANTINIB S-MALATE
     Indication: Product used for unknown indication
     Dosage: 140 MG
     Route: 065
     Dates: start: 20230228, end: 20230402

REACTIONS (1)
  - Palmar-plantar erythrodysaesthesia syndrome [Fatal]

NARRATIVE: CASE EVENT DATE: 20230324
